FAERS Safety Report 18608075 (Version 1)
Quarter: 2020Q4

REPORT INFORMATION
  Report Type: Spontaneous
  Country: DK (occurrence: DK)
  Receive Date: 20201211
  Receipt Date: 20201211
  Transmission Date: 20210114
  Serious: Yes (Hospitalization, Disabling)
  Sender: FDA-Public Use
  Company Number: DK-JNJFOC-20201219457

PATIENT
  Age: 62 Year
  Sex: Female
  Weight: 81 kg

DRUGS (2)
  1. RIVAROXABAN [Suspect]
     Active Substance: RIVAROXABAN
     Indication: DEEP VEIN THROMBOSIS
     Dosage: 20 MG, QD
     Route: 048
     Dates: start: 20140923, end: 20150227
  2. ALENDRONATE SODIUM. [Concomitant]
     Active Substance: ALENDRONATE SODIUM
     Indication: OSTEOPOROSIS
     Dosage: UNK
     Dates: start: 20140101

REACTIONS (20)
  - Diarrhoea [Unknown]
  - Abdominal pain [Unknown]
  - Adrenal insufficiency [Unknown]
  - Fatigue [Not Recovered/Not Resolved]
  - Asthenia [Not Recovered/Not Resolved]
  - Adrenal haemorrhage [Recovered/Resolved with Sequelae]
  - Adrenomegaly [Unknown]
  - Abdominal distension [Unknown]
  - Vomiting [Unknown]
  - Depressed mood [Not Recovered/Not Resolved]
  - Intra-abdominal fluid collection [Unknown]
  - Dehydration [Unknown]
  - Mental disorder [Not Recovered/Not Resolved]
  - Nausea [Unknown]
  - Addison^s disease [Not Recovered/Not Resolved]
  - Pyrexia [Unknown]
  - Chills [Unknown]
  - Weight increased [Unknown]
  - Pain [Unknown]
  - Insomnia [Unknown]

NARRATIVE: CASE EVENT DATE: 2015
